FAERS Safety Report 7602770-8 (Version None)
Quarter: 2011Q3

REPORT INFORMATION
  Report Type: 
  Country: None (occurrence: None)
  Receive Date: 20110711
  Receipt Date: 20110711
  Transmission Date: 20111222
  Serious: No
  Sender: FDA-Public Use
  Company Number: None

PATIENT
  Age: 23 Year
  Sex: Male
  Weight: 33.3 kg

DRUGS (8)
  1. CISAPRIDE 10 MG [Suspect]
     Indication: CONVULSION
     Dosage: 10MG QID
     Dates: start: 19900101
  2. CISAPRIDE 10 MG [Suspect]
     Indication: GASTROOESOPHAGEAL REFLUX DISEASE
     Dosage: 10MG QID
     Dates: start: 19900101
  3. PHENOBARB [Concomitant]
  4. PREVACID [Concomitant]
  5. DILANTIN [Concomitant]
  6. VALPROIC ACID [Concomitant]
  7. SYNTHROID [Concomitant]
  8. HYDROCORTISONE [Concomitant]

REACTIONS (2)
  - ELECTROOCULOGRAM ABNORMAL [None]
  - ELECTROCARDIOGRAM QT PROLONGED [None]
